FAERS Safety Report 4971906-X (Version None)
Quarter: 2006Q2

REPORT INFORMATION
  Report Type: 
  Country: None (occurrence: None)
  Receive Date: 20060412
  Receipt Date: 20060412
  Transmission Date: 20061013
  Serious: Yes (Other)
  Sender: FDA-Public Use
  Company Number: None

PATIENT
  Age: 71 Year
  Sex: Male
  Weight: 101.6057 kg

DRUGS (1)
  1. IRESSA [Suspect]
     Indication: RENAL DISORDER
     Dosage: 250 MG PO QD
     Route: 048

REACTIONS (2)
  - DERMATITIS ACNEIFORM [None]
  - FUNGAL RASH [None]
